FAERS Safety Report 9165997 (Version 1)
Quarter: 2013Q1

REPORT INFORMATION
  Report Type: Spontaneous
  Country: AU (occurrence: AU)
  Receive Date: 20130315
  Receipt Date: 20130315
  Transmission Date: 20140127
  Serious: Yes (Other)
  Sender: FDA-Public Use
  Company Number: AU-ROCHE-1202349

PATIENT
  Sex: 0

DRUGS (4)
  1. HERCEPTIN [Suspect]
     Indication: METASTATIC NEOPLASM
     Route: 065
  2. TAXOTERE [Concomitant]
  3. VINORELBINE [Concomitant]
  4. ABRAXANE [Concomitant]

REACTIONS (1)
  - Disease progression [Unknown]
